FAERS Safety Report 7341941 (Version 3)
Quarter: 2013Q1

REPORT INFORMATION
  Report Type: Spontaneous
  Country: US (occurrence: US)
  Receive Date: 20100402
  Receipt Date: 20130104
  Transmission Date: 20140127
  Serious: No
  Sender: FDA-Public Use
  Company Number: US-BIOGENIDEC-2010BI010569

PATIENT
  Age: 55 None
  Sex: Male

DRUGS (5)
  1. TYSABRI [Suspect]
     Indication: MULTIPLE SCLEROSIS
     Route: 042
     Dates: start: 200502, end: 200502
  2. TYSABRI [Suspect]
     Indication: MULTIPLE SCLEROSIS
     Route: 042
     Dates: start: 20100225
  3. FLAXSEED OIL [Concomitant]
  4. MIRAPEX [Concomitant]
     Indication: RESTLESS LEGS SYNDROME
     Route: 048
  5. GILENYA [Concomitant]

REACTIONS (9)
  - Babesiosis [Unknown]
  - Influenza like illness [Unknown]
  - Headache [Unknown]
  - Rash pruritic [Unknown]
  - Pruritus generalised [Unknown]
  - Chills [Unknown]
  - Arthralgia [Unknown]
  - Central nervous system lesion [Not Recovered/Not Resolved]
  - Hypersensitivity [Unknown]
